FAERS Safety Report 8827810 (Version 2)
Quarter: 2012Q4

REPORT INFORMATION
  Report Type: 
  Country: JP (occurrence: JP)
  Receive Date: 20121005
  Receipt Date: 20121011
  Transmission Date: 20130627
  Serious: Yes (Hospitalization)
  Sender: FDA-Public Use
  Company Number: JP-JNJFOC-20120913150

PATIENT
  Age: 72 Year
  Sex: Female

DRUGS (4)
  1. REMINYL [Suspect]
     Indication: DEMENTIA
     Route: 048
     Dates: start: 20120824, end: 2012
  2. MEMANTINE HYDROCHLORIDE [Concomitant]
     Route: 065
  3. NICERGOLINE [Concomitant]
     Route: 065
  4. TANATRIL [Concomitant]
     Route: 065

REACTIONS (1)
  - Syncope [Recovered/Resolved]
